FAERS Safety Report 7955200-0 (Version None)
Quarter: 2011Q4

REPORT INFORMATION
  Report Type: 
  Country: None (occurrence: None)
  Receive Date: 20111202
  Receipt Date: 20111123
  Transmission Date: 20120403
  Serious: Yes (Hospitalization)
  Sender: FDA-Public Use
  Company Number: US-US-EMD SERONO, INC.-7098589

PATIENT
  Sex: Female
  Weight: 61 kg

DRUGS (4)
  1. REBIF [Suspect]
     Indication: MULTIPLE SCLEROSIS
     Dates: start: 20111001
  2. REBIF [Suspect]
  3. REBIF [Suspect]
  4. LEXAPRO [Concomitant]
     Indication: DEPRESSION

REACTIONS (1)
  - MULTIPLE SCLEROSIS RELAPSE [None]
